FAERS Safety Report 11740806 (Version 2)
Quarter: 2016Q1

REPORT INFORMATION
  Report Type: Report from Study
  Country: US (occurrence: US)
  Receive Date: 20151114
  Receipt Date: 20160123
  Transmission Date: 20160525
  Serious: Yes (Hospitalization)
  Sender: FDA-Public Use
  Company Number: US-BRISTOL-MYERS SQUIBB COMPANY-BMS-2015-075831

PATIENT
  Age: 45 Year
  Sex: Male

DRUGS (2)
  1. SOVALDI [Suspect]
     Active Substance: SOFOSBUVIR
     Indication: CHRONIC HEPATITIS C
     Dosage: 400 MG, QD
     Route: 048
     Dates: start: 20150723
  2. DACLATASVIR DIHYDROCHLORIDE [Suspect]
     Active Substance: DACLATASVIR DIHYDROCHLORIDE
     Indication: CHRONIC HEPATITIS C
     Dosage: 60 MG, QD
     Route: 048
     Dates: start: 20150723

REACTIONS (5)
  - Abdominal pain [Unknown]
  - Dyspnoea [Unknown]
  - Paracentesis [Unknown]
  - Generalised oedema [Recovered/Resolved]
  - Swelling [Unknown]

NARRATIVE: CASE EVENT DATE: 20151029
